FAERS Safety Report 6736168-1 (Version None)
Quarter: 2010Q2

REPORT INFORMATION
  Report Type: 
  Country: None (occurrence: None)
  Receive Date: 20100521
  Receipt Date: 20100510
  Transmission Date: 20101027
  Serious: Yes (Other)
  Sender: FDA-Public Use
  Company Number: GB-JNJFOC-20100206967

PATIENT
  Sex: Female
  Weight: 64 kg

DRUGS (4)
  1. REMICADE [Suspect]
     Indication: CROHN'S DISEASE
     Route: 042
  2. IRON [Concomitant]
     Route: 048
  3. CALCIUM + D3 [Concomitant]
     Route: 048
  4. ISONIAZID [Concomitant]
     Indication: ANAL FISTULA

REACTIONS (2)
  - DRUG EXPOSURE DURING PREGNANCY [None]
  - PRURITUS GENITAL [None]
